FAERS Safety Report 7913809-4 (Version None)
Quarter: 2011Q4

REPORT INFORMATION
  Report Type: 
  Country: None (occurrence: None)
  Receive Date: 20111115
  Receipt Date: 20111111
  Transmission Date: 20120403
  Serious: Yes (Death, Life-Threatening, Hospitalization)
  Sender: FDA-Public Use
  Company Number: US-JNJFOC-20100303376

PATIENT
  Sex: Male
  Weight: 73.94 kg

DRUGS (4)
  1. SEROQUEL [Concomitant]
     Indication: SCHIZOPHRENIA
     Route: 065
  2. RISPERDAL [Suspect]
     Indication: SCHIZOPHRENIA
     Route: 030
     Dates: start: 20090223, end: 20090225
  3. AMBIEN [Suspect]
     Indication: INSOMNIA
     Route: 065
     Dates: start: 20090223, end: 20090225
  4. SEROQUEL [Concomitant]
     Indication: PSYCHOTIC DISORDER
     Route: 065

REACTIONS (11)
  - CONGESTIVE CARDIOMYOPATHY [None]
  - LOSS OF CONSCIOUSNESS [None]
  - RESPIRATORY FAILURE [None]
  - CARDIAC FAILURE CONGESTIVE [None]
  - HEPATIC ENZYME INCREASED [None]
  - MENTAL STATUS CHANGES [None]
  - CARDIO-RESPIRATORY ARREST [None]
  - HEPATIC FAILURE [None]
  - RENAL FAILURE [None]
  - PNEUMONIA [None]
  - MYOCARDIAL INFARCTION [None]
